FAERS Safety Report 8169926-X (Version None)
Quarter: 2012Q1

REPORT INFORMATION
  Report Type: 
  Country: None (occurrence: None)
  Receive Date: 20120228
  Receipt Date: 20120228
  Transmission Date: 20120608
  Serious: Yes (Other)
  Sender: FDA-Public Use
  Company Number: None

PATIENT
  Age: 45 Year
  Sex: Female
  Weight: 61.234 kg

DRUGS (1)
  1. HUMIRA [Suspect]
     Indication: RHEUMATOID ARTHRITIS
     Dosage: 40 MILLIGRAMS
     Route: 058
     Dates: start: 20110821, end: 20120108

REACTIONS (7)
  - INJECTION SITE REACTION [None]
  - URTICARIA [None]
  - DRUG ERUPTION [None]
  - PRURITUS [None]
  - PSORIASIS [None]
  - RASH [None]
  - ERYTHEMA [None]
